FAERS Safety Report 9382530 (Version 1)
Quarter: 2013Q3

REPORT INFORMATION
  Report Type: Spontaneous
  Country: US (occurrence: US)
  Receive Date: 20130703
  Receipt Date: 20130703
  Transmission Date: 20140515
  Serious: Yes (Other)
  Sender: FDA-Public Use
  Company Number: US-GLAXOSMITHKLINE-A1029140A

PATIENT
  Sex: Male
  Weight: 63.6 kg

DRUGS (7)
  1. VALTREX [Suspect]
     Indication: PRODUCT USED FOR UNKNOWN INDICATION
     Dosage: 500MG TWICE PER DAY
     Route: 065
  2. DEPO TESTOSTERONE [Suspect]
     Indication: ANDROGEN REPLACEMENT THERAPY
     Dosage: 1ML SEE DOSAGE TEXT
     Route: 065
     Dates: start: 2004, end: 201305
  3. KEPPRA [Concomitant]
  4. LEVOTHYROXINE [Concomitant]
  5. DDAVP [Concomitant]
  6. GABAPENTIN [Concomitant]
  7. BACLOFEN [Concomitant]

REACTIONS (5)
  - Brain neoplasm [Unknown]
  - Neoplasm [Unknown]
  - Nervous system disorder [Unknown]
  - Herpes zoster [Recovered/Resolved]
  - Spinal disorder [None]
